FAERS Safety Report 6615062-0 (Version None)
Quarter: 2010Q1

REPORT INFORMATION
  Report Type: 
  Country: None (occurrence: None)
  Receive Date: 20100226
  Receipt Date: 20100215
  Transmission Date: 20100710
  Serious: Yes (Hospitalization)
  Sender: FDA-Public Use
  Company Number: 1000011995

PATIENT
  Age: 13 Year
  Sex: Male

DRUGS (10)
  1. CITALOPRAM          (CITALOPRAM HYDROCHLORIDE) [Suspect]
     Dosage: 80 MG, ONCE , ORAL; ORAL
     Route: 048
     Dates: start: 20091205, end: 20091205
  2. TIAPRIDE (5 MILLIGRAM, TABLETS) [Suspect]
     Dosage: 35 MG, ONCE, ORAL; ORAL
     Route: 048
     Dates: start: 20091205, end: 20091205
  3. IKARAN (TABLETS) [Suspect]
     Dosage: SEVERAL TABLETS NOS (ONCE), ORAL; ORAL
     Route: 048
     Dates: start: 20091205, end: 20091205
  4. LAROXYL (SOLUTION) [Suspect]
     Dosage: 30 GIT, ONCE, ORAL; ORAL
     Route: 048
     Dates: start: 20091205, end: 20091205
  5. MICROPAKINE [Concomitant]
  6. OLIGOSTIM LITHIUM [Concomitant]
  7. NUX VOMICA [Concomitant]
  8. AURUM METALLICUM [Concomitant]
  9. ESCHOLIZIA [Concomitant]
  10. OENOTHERA BIENNIS OIL [Concomitant]

REACTIONS (5)
  - AGGRESSION [None]
  - AGITATION [None]
  - CONDITION AGGRAVATED [None]
  - POISONING DELIBERATE [None]
  - SELF INJURIOUS BEHAVIOUR [None]
